FAERS Safety Report 14714683 (Version 4)
Quarter: 2018Q3

REPORT INFORMATION
  Report Type: Spontaneous
  Country: JP (occurrence: JP)
  Receive Date: 20180404
  Receipt Date: 20180731
  Transmission Date: 20181010
  Serious: Yes (Other)
  Sender: FDA-Public Use
  Company Number: JP-PFIZER INC-2018079247

PATIENT
  Age: 56 Year
  Sex: Female

DRUGS (4)
  1. HALCION [Suspect]
     Active Substance: TRIAZOLAM
     Dosage: UNK
  2. LETROZOLE. [Concomitant]
     Active Substance: LETROZOLE
     Dosage: 2.5 MG, DAILY
     Route: 048
  3. IBRANCE [Suspect]
     Active Substance: PALBOCICLIB
     Dosage: 100 MG, DAILY
     Route: 048
     Dates: start: 201802
  4. IBRANCE [Suspect]
     Active Substance: PALBOCICLIB
     Indication: BREAST CANCER
     Dosage: 125 MG, DAILY
     Route: 048
     Dates: start: 20180122, end: 20180129

REACTIONS (4)
  - Neutropenia [Recovered/Resolved]
  - Embolism venous [Recovered/Resolved]
  - Neutrophil count decreased [Unknown]
  - Neoplasm progression [Recovered/Resolved]

NARRATIVE: CASE EVENT DATE: 20180129
